FAERS Safety Report 19029753 (Version 3)
Quarter: 2021Q2

REPORT INFORMATION
  Report Type: Spontaneous
  Country: ES (occurrence: ES)
  Receive Date: 20210319
  Receipt Date: 20210414
  Transmission Date: 20210717
  Serious: Yes (Hospitalization, Other)
  Sender: FDA-Public Use
  Company Number: ES-SA-2021SA089946

PATIENT
  Age: 53 Year
  Sex: Male

DRUGS (16)
  1. DUPIXENT [Suspect]
     Active Substance: DUPILUMAB
     Indication: DERMATITIS ATOPIC
     Dosage: 300 MG, QOW
     Dates: start: 20200528, end: 2020
  2. PARACETAMOL [Concomitant]
     Active Substance: ACETAMINOPHEN
  3. ALLOPURINOL. [Concomitant]
     Active Substance: ALLOPURINOL
     Dates: start: 20191107
  4. GABAPENTIN. [Concomitant]
     Active Substance: GABAPENTIN
  5. INH [Concomitant]
     Active Substance: ISONIAZID
  6. RISEDRONIC ACID [Concomitant]
     Active Substance: RISEDRONIC ACID
  7. SEPTRIN [Concomitant]
     Active Substance: SULFAMETHOXAZOLE\TRIMETHOPRIM
     Dosage: 800/160MG
     Dates: start: 20200107
  8. CEFTRIAXONE. [Concomitant]
     Active Substance: CEFTRIAXONE
  9. PREDNISONE. [Concomitant]
     Active Substance: PREDNISONE
     Indication: ASTHMA
     Dosage: 30 MG IN DESCENDIMG PATTERN
  10. PREDNISONE. [Concomitant]
     Active Substance: PREDNISONE
     Indication: DERMATITIS ATOPIC
  11. OMEPRAZOLE. [Concomitant]
     Active Substance: OMEPRAZOLE
     Dates: start: 20190116
  12. ENTECAVIR. [Concomitant]
     Active Substance: ENTECAVIR
  13. DUPIXENT [Suspect]
     Active Substance: DUPILUMAB
     Dosage: 300 MG, QOW
     Dates: start: 20201222, end: 20210126
  14. ACICLOVIR [Concomitant]
     Active Substance: ACYCLOVIR
     Dates: start: 20200206
  15. ESCITALOPRAM [Concomitant]
     Active Substance: ESCITALOPRAM OXALATE
     Dates: start: 20181031
  16. LORAZEPAM. [Concomitant]
     Active Substance: LORAZEPAM
     Dates: start: 20190509

REACTIONS (19)
  - Pneumonia [Unknown]
  - Haemolysis [Unknown]
  - Osteoporosis [Unknown]
  - Aphasia [Unknown]
  - Encephalitis [Unknown]
  - Cholestasis [Unknown]
  - Arachnoid cyst [Unknown]
  - Bradyphrenia [Unknown]
  - Parathyroid tumour benign [Unknown]
  - Arthralgia [Unknown]
  - Pyrexia [Unknown]
  - Hospitalisation [Unknown]
  - Behaviour disorder [Unknown]
  - Cognitive disorder [Unknown]
  - Dehydration [Unknown]
  - Hepatitis B [Unknown]
  - Psychomotor hyperactivity [Unknown]
  - Hyperparathyroidism primary [Unknown]
  - Anxiety [Unknown]

NARRATIVE: CASE EVENT DATE: 20200608
